FAERS Safety Report 7559964-X (Version None)
Quarter: 2011Q2

REPORT INFORMATION
  Report Type: 
  Country: None (occurrence: None)
  Receive Date: 20110614
  Receipt Date: 20110531
  Transmission Date: 20111010
  Serious: Yes (Other)
  Sender: FDA-Public Use
  Company Number: 2011MA005917

PATIENT
  Age: 73 Year
  Sex: Female

DRUGS (1)
  1. DIAZEPAM [Suspect]
     Dosage: 4 MG; QD;

REACTIONS (1)
  - GLAUCOMA [None]
